FAERS Safety Report 11626090 (Version 3)
Quarter: 2015Q4

REPORT INFORMATION
  Report Type: Spontaneous
  Country: BR (occurrence: BR)
  Receive Date: 20151013
  Receipt Date: 20151106
  Transmission Date: 20160304
  Serious: Yes (Other)
  Sender: FDA-Public Use
  Company Number: BR-ELI_LILLY_AND_COMPANY-BR201509003572

PATIENT
  Age: 77 Year
  Sex: Male

DRUGS (11)
  1. HUMULIN N [Suspect]
     Active Substance: INSULIN HUMAN
     Indication: DIABETES MELLITUS
     Dosage: 40 IU, EACH MORNING
     Route: 058
     Dates: start: 2009, end: 20150908
  2. HUMULIN N [Suspect]
     Active Substance: INSULIN HUMAN
     Dosage: 30 IU, UNKNOWN
     Route: 065
  3. ISOCOR                             /07346401/ [Concomitant]
     Route: 065
  4. OROXADIN [Concomitant]
     Active Substance: CIPROFIBRATE
     Indication: CARDIAC DISORDER
     Dosage: UNK, UNKNOWN
     Route: 065
  5. HUMULIN N [Suspect]
     Active Substance: INSULIN HUMAN
     Dosage: UNK, BID
     Route: 058
  6. HUMULIN R [Suspect]
     Active Substance: INSULIN HUMAN
     Dosage: 10 IU, EACH EVENING
     Route: 058
     Dates: start: 2009
  7. HUMULIN R [Suspect]
     Active Substance: INSULIN HUMAN
     Indication: DIABETES MELLITUS
     Dosage: 10 IU, EACH MORNING
     Route: 058
     Dates: start: 2009, end: 20150908
  8. AAS [Concomitant]
     Active Substance: ASPIRIN
     Indication: CARDIAC DISORDER
     Dosage: UNK, UNKNOWN
     Route: 065
  9. OMEPRAZOL                          /00661201/ [Concomitant]
     Active Substance: OMEPRAZOLE
     Indication: GASTRIC DISORDER
     Dosage: UNK, UNKNOWN
     Route: 065
  10. HUMULIN N [Suspect]
     Active Substance: INSULIN HUMAN
     Dosage: 30 IU, EACH EVENING
     Route: 058
     Dates: start: 2009, end: 20150908
  11. HUMULIN R [Suspect]
     Active Substance: INSULIN HUMAN
     Dosage: 10 IU, OTHER
     Route: 058
     Dates: start: 2009, end: 20150908

REACTIONS (13)
  - Abscess limb [Unknown]
  - Muscle rigidity [Unknown]
  - Skin ulcer [Unknown]
  - Wound necrosis [Not Recovered/Not Resolved]
  - Injection site mass [Not Recovered/Not Resolved]
  - Injection site swelling [Not Recovered/Not Resolved]
  - Injection site vesicles [Not Recovered/Not Resolved]
  - Injection site inflammation [Not Recovered/Not Resolved]
  - Visual impairment [Unknown]
  - Injection site pain [Not Recovered/Not Resolved]
  - Injection site pain [Not Recovered/Not Resolved]
  - Abdominal rigidity [Unknown]
  - Injection site pain [Unknown]

NARRATIVE: CASE EVENT DATE: 20150907
